FAERS Safety Report 4652991-1 (Version None)
Quarter: 2005Q2

REPORT INFORMATION
  Report Type: 
  Country: None (occurrence: None)
  Receive Date: 20050503
  Receipt Date: 20050419
  Transmission Date: 20051028
  Serious: Yes (Other)
  Sender: FDA-Public Use
  Company Number: US-2004-029794

PATIENT
  Age: 56 Year
  Sex: Female
  Weight: 78 kg

DRUGS (9)
  1. CLIMARA [Suspect]
     Indication: HORMONE REPLACEMENT THERAPY
     Dosage: 0.05 MG TRANSDERMAL
     Route: 062
     Dates: start: 19970101, end: 19980101
  2. PREMARIN/NEX/(ESTROGENS CONJUGATED) [Suspect]
     Indication: HORMONE REPLACEMENT THERAPY
     Dates: start: 19860101, end: 19980101
  3. VIVELLE [Suspect]
     Indication: HORMONE REPLACEMENT THERAPY
     Dates: start: 19960101
  4. ESTRACE [Suspect]
     Indication: HORMONE REPLACEMENT THERAPY
  5. MOTRIN [Concomitant]
  6. PROVENTIL [Concomitant]
  7. TAMOXIFEN CITRATE [Concomitant]
  8. AUGMENTIN '125' [Concomitant]
  9. BELLAMINE S (BELLADONNA ALKALOIDS, PHENOBARBITAL) [Concomitant]

REACTIONS (6)
  - ATRIAL HYPERTROPHY [None]
  - BREAST CANCER IN SITU [None]
  - BREAST MICROCALCIFICATION [None]
  - ELECTROCARDIOGRAM ST-T CHANGE [None]
  - FIBROCYSTIC BREAST DISEASE [None]
  - POSTOPERATIVE THROMBOSIS [None]
